FAERS Safety Report 4630247-0 (Version None)
Quarter: 2005Q2

REPORT INFORMATION
  Report Type: 
  Country: None (occurrence: None)
  Receive Date: 20050408
  Receipt Date: 20050309
  Transmission Date: 20051028
  Serious: Yes (Death, Hospitalization, Other)
  Sender: FDA-Public Use
  Company Number: PHBS2005JP03537

PATIENT
  Age: 67 Year
  Sex: Male

DRUGS (3)
  1. ATG [Concomitant]
  2. NEORAL [Suspect]
     Indication: APLASTIC ANAEMIA
     Dosage: 200 MG/DAY
     Route: 048
     Dates: start: 20050201, end: 20050201
  3. NEORAL [Suspect]
     Dosage: 250 MG/D
     Route: 048
     Dates: start: 20050201, end: 20050308

REACTIONS (11)
  - BLOOD CREATININE INCREASED [None]
  - CONVERSION DISORDER [None]
  - DEPRESSED LEVEL OF CONSCIOUSNESS [None]
  - DIALYSIS [None]
  - HYPONATRAEMIA [None]
  - INFECTION [None]
  - NEUROSIS [None]
  - OEDEMA [None]
  - PNEUMOCYSTIS JIROVECI PNEUMONIA [None]
  - PROTEINURIA [None]
  - SEPSIS [None]
